FAERS Safety Report 4954462-1 (Version None)
Quarter: 2006Q1

REPORT INFORMATION
  Report Type: 
  Country: None (occurrence: None)
  Receive Date: 20060322
  Receipt Date: 20060314
  Transmission Date: 20060701
  Serious: Yes (Other)
  Sender: FDA-Public Use
  Company Number: GXKR2006TR01451

PATIENT
  Age: 10 Month
  Sex: Female

DRUGS (1)
  1. AMIODARON HYDROCHLORIDE (NGX) (AMIODARONE) [Suspect]
     Indication: VENTRICULAR FIBRILLATION
     Dosage: LOADING DOSE, 5 AUG/KG/MIN, INTRAVENOUS
     Route: 042

REACTIONS (1)
  - HYPERGLYCAEMIA [None]
